FAERS Safety Report 4428800-2 (Version None)
Quarter: 2004Q3

REPORT INFORMATION
  Report Type: 
  Country: None (occurrence: None)
  Receive Date: 20040818
  Receipt Date: 20040813
  Transmission Date: 20050211
  Serious: Yes (Other)
  Sender: FDA-Public Use
  Company Number: CH-MERCK-0408CHE00019

PATIENT
  Age: 48 Year
  Sex: Female
  Weight: 57 kg

DRUGS (1)
  1. VIOXX [Suspect]
     Indication: PAIN
     Route: 048
     Dates: start: 20040310, end: 20040312

REACTIONS (6)
  - ANXIETY [None]
  - DYSPNOEA [None]
  - FORMICATION [None]
  - HALLUCINATION, VISUAL [None]
  - PANIC REACTION [None]
  - TENSION [None]
